FAERS Safety Report 16716148 (Version 1)
Quarter: 2019Q3

REPORT INFORMATION
  Report Type: Spontaneous
  Country: TN (occurrence: TN)
  Receive Date: 20190819
  Receipt Date: 20190819
  Transmission Date: 20191005
  Serious: Yes (Death)
  Sender: FDA-Public Use
  Company Number: TN-MYLANLABS-2019M1077431

PATIENT
  Age: 35 Year
  Sex: Female

DRUGS (2)
  1. FLUOROURACILE [Concomitant]
     Active Substance: FLUOROURACIL
     Indication: NASOPHARYNGEAL CANCER
     Route: 065
  2. CISPLATIN. [Suspect]
     Active Substance: CISPLATIN
     Indication: NASOPHARYNGEAL CANCER
     Route: 065

REACTIONS (2)
  - Chronic myeloid leukaemia [Fatal]
  - Haemorrhage [Fatal]
